FAERS Safety Report 22530891 (Version 1)
Quarter: 2023Q2

REPORT INFORMATION
  Report Type: Spontaneous
  Country: CN (occurrence: CN)
  Receive Date: 20230607
  Receipt Date: 20230607
  Transmission Date: 20230722
  Serious: Yes (Life-Threatening, Other)
  Sender: FDA-Public Use
  Company Number: CN-SUN PHARMACEUTICAL INDUSTRIES LTD-2023R1-392134

PATIENT
  Age: 64 Year
  Sex: Male

DRUGS (4)
  1. MORPHINE [Interacting]
     Active Substance: MORPHINE
     Indication: Insomnia
     Dosage: 30-60 MILLIGRAM, Q12 H
     Route: 048
  2. MORPHINE [Interacting]
     Active Substance: MORPHINE
     Indication: Cancer pain
  3. ESTAZOLAM [Interacting]
     Active Substance: ESTAZOLAM
     Indication: Insomnia
     Dosage: 1 MILLIGRAM, PRN
     Route: 048
  4. ESTAZOLAM [Interacting]
     Active Substance: ESTAZOLAM
     Indication: Cancer pain

REACTIONS (4)
  - Toxicity to various agents [Unknown]
  - Drug interaction [Unknown]
  - Coma [Recovered/Resolved]
  - Respiratory failure [Recovered/Resolved]
